FAERS Safety Report 5844961-2 (Version None)
Quarter: 2008Q3

REPORT INFORMATION
  Report Type: 
  Country: None (occurrence: None)
  Receive Date: 20080813
  Receipt Date: 20080813
  Transmission Date: 20090109
  Serious: No
  Sender: FDA-Public Use
  Company Number: None

PATIENT
  Sex: Male

DRUGS (10)
  1. REVLIMID [Suspect]
     Indication: MULTIPLE MYELOMA
     Dosage: 10MG DAILY ORALLY
     Route: 048
     Dates: start: 20080709, end: 20080727
  2. AREDIA [Concomitant]
  3. DEXAMETHASONE TAB [Concomitant]
  4. VELCADE [Concomitant]
  5. ACETAMINOPHEN AND CODEINE PHOSPHATE [Concomitant]
  6. FENTANYL TRANSDERMAL SYSTEM [Concomitant]
  7. PROCRIT [Concomitant]
  8. REGULAR INSULIN [Concomitant]
  9. DRONABINOL [Concomitant]
  10. LACTULOSE [Concomitant]

REACTIONS (1)
  - THROMBOCYTOPENIA [None]
